FAERS Safety Report 5121458-9 (Version None)
Quarter: 2006Q4

REPORT INFORMATION
  Report Type: 
  Country: None (occurrence: None)
  Receive Date: 20061003
  Receipt Date: 20060921
  Transmission Date: 20070319
  Serious: Yes (Other)
  Sender: FDA-Public Use
  Company Number: 2006114502

PATIENT
  Sex: Female

DRUGS (5)
  1. SULFASALAZINE [Suspect]
     Indication: SPONDYLOPATHY TRAUMATIC
     Dosage: 1500 MG (500 MG, 3 IN 1 D)
  2. CELECOXIB (CELECOXIB) [Concomitant]
  3. INIPOMP (PANTOPRAZOLE) [Concomitant]
  4. PIASCLEDINE (PERSEAE OLEUM, SOYA OIL) [Concomitant]
  5. MAGNESIUM SULFATE [Concomitant]

REACTIONS (4)
  - FATIGUE [None]
  - INTERVERTEBRAL DISC PROTRUSION [None]
  - RED BLOOD CELL COUNT DECREASED [None]
  - WHITE BLOOD CELL COUNT DECREASED [None]
